FAERS Safety Report 5131060-0 (Version None)
Quarter: 2006Q3

REPORT INFORMATION
  Report Type: 
  Country: None (occurrence: None)
  Receive Date: 20060829
  Receipt Date: 20060720
  Transmission Date: 20061208
  Serious: No
  Sender: FDA-Public Use
  Company Number: S06-USA-02792-01

PATIENT
  Age: 63 Year
  Sex: Female

DRUGS (3)
  1. CAMPRAL [Suspect]
     Indication: ALCOHOLISM
     Dosage: 333 MG TID PO
     Route: 048
     Dates: start: 20040101
  2. CAMPRAL [Suspect]
     Indication: ALCOHOLISM
     Dosage: UNK
     Dates: start: 20060101, end: 20060101
  3. WELLBUTRIN [Concomitant]

REACTIONS (1)
  - DIARRHOEA [None]
